FAERS Safety Report 17021205 (Version 1)
Quarter: 2019Q4

REPORT INFORMATION
  Report Type: Spontaneous
  Country: US (occurrence: US)
  Receive Date: 20191107
  Receipt Date: 20191107
  Transmission Date: 20200122
  Serious: No
  Sender: FDA-Public Use
  Company Number: None

PATIENT
  Sex: Female

DRUGS (1)
  1. ENOXAPARIN SOD SYRINGE 40MG/.4ML WINTHROP, US [Suspect]
     Active Substance: ENOXAPARIN SODIUM
     Indication: CHRONIC HEPATITIS B
     Route: 058
     Dates: start: 20191010

REACTIONS (3)
  - Injection site rash [None]
  - Injection site erythema [None]
  - Injection site pain [None]
